FAERS Safety Report 10396270 (Version 1)
Quarter: 2014Q1

REPORT INFORMATION
  Report Type: Spontaneous
  Country: US (occurrence: None)
  Receive Date: 20130130
  Receipt Date: 20130130
  Transmission Date: 20141002
  Serious: Yes (Hospitalization, Other)
  Sender: FDA-Public Use
  Company Number: US201201007945

PATIENT
  Age: 27 Year
  Sex: Female

DRUGS (5)
  1. BYETTA (EXENATIDE) PEN, DISPOSABLE [Suspect]
     Route: 058
  2. GEMFIBROZIL (GEMFIBROZIL) [Concomitant]
  3. ZOCOR (SIMVASTATIN) [Concomitant]
  4. LEVOXYL [Concomitant]
  5. GLYBURIDE/METFORMIN (GLIBENCLAMIDE, METFORMIN HYDROCHLORIDE) [Concomitant]

REACTIONS (2)
  - Pancreatitis acute [None]
  - Hyperlipidaemia [None]
